FAERS Safety Report 7971894-8 (Version None)
Quarter: 2011Q4

REPORT INFORMATION
  Report Type: 
  Country: None (occurrence: None)
  Receive Date: 20111212
  Receipt Date: 20111204
  Transmission Date: 20120403
  Serious: Yes (Other)
  Sender: FDA-Public Use
  Company Number: PHHY2011MX106261

PATIENT
  Sex: Female

DRUGS (2)
  1. GLIMETAL [Concomitant]
  2. EXFORGE [Suspect]
     Indication: HYPERTENSION
     Dosage: 1 DF( 160/10 MG), DAILY
     Dates: start: 20110101

REACTIONS (2)
  - FALL [None]
  - RIB FRACTURE [None]
